FAERS Safety Report 12366296 (Version 2)
Quarter: 2016Q2

REPORT INFORMATION
  Report Type: Report from Study
  Country: TN (occurrence: TN)
  Receive Date: 20160513
  Receipt Date: 20160517
  Transmission Date: 20160815
  Serious: No
  Sender: FDA-Public Use
  Company Number: PHHY2013TN051427

PATIENT
  Age: 15 Year
  Sex: Female

DRUGS (8)
  1. EXJADE [Suspect]
     Active Substance: DEFERASIROX
     Dosage: 750 MG, ONCE DAILY
     Route: 048
     Dates: start: 20110518
  2. SPIROGYL [Concomitant]
     Indication: PRODUCT USED FOR UNKNOWN INDICATION
     Route: 065
  3. CALPEROS [Concomitant]
     Active Substance: CALCIUM CARBONATE
     Indication: PRODUCT USED FOR UNKNOWN INDICATION
     Route: 065
  4. EXJADE [Suspect]
     Active Substance: DEFERASIROX
     Indication: THALASSAEMIA BETA
     Dosage: 1 G, UNK
     Route: 048
     Dates: start: 20110301
  5. EXJADE [Suspect]
     Active Substance: DEFERASIROX
     Dosage: 1000 MG, PER DAY
     Route: 048
  6. EXJADE [Suspect]
     Active Substance: DEFERASIROX
     Dosage: 2000 MG, UNK
     Route: 048
     Dates: start: 20160413
  7. FOLINIC ACID [Concomitant]
     Active Substance: LEUCOVORIN
     Indication: PRODUCT USED FOR UNKNOWN INDICATION
     Route: 065
  8. EXJADE [Suspect]
     Active Substance: DEFERASIROX
     Dosage: 1500 MG, UNK
     Route: 048

REACTIONS (9)
  - Hepatic siderosis [Unknown]
  - Ovarian atrophy [Unknown]
  - Weight decreased [Unknown]
  - Cardiac siderosis [Unknown]
  - Hypothyroidism [Unknown]
  - Developmental delay [Unknown]
  - Delayed puberty [Unknown]
  - Blood glucose abnormal [Unknown]
  - Serum ferritin increased [Not Recovered/Not Resolved]

NARRATIVE: CASE EVENT DATE: 20120814
